FAERS Safety Report 10483776 (Version 1)
Quarter: 2014Q3

REPORT INFORMATION
  Report Type: Other
  Country: DE (occurrence: DE)
  Receive Date: 20140930
  Receipt Date: 20140930
  Transmission Date: 20150326
  Serious: Yes (Other)
  Sender: FDA-Public Use
  Company Number: DE-MYLANLABS-2014M1005346

PATIENT

DRUGS (8)
  1. KIVEXA [Concomitant]
     Active Substance: ABACAVIR SULFATE\LAMIVUDINE
     Dosage: DAILY DOSE: 1 DF DOSAGE FORM EVERY DAYS
  2. RISPERIDON [Concomitant]
     Active Substance: RISPERIDONE
     Indication: SCHIZOPHRENIA
     Dosage: 6 MG, UNK
     Route: 048
  3. ISENTRESS [Concomitant]
     Active Substance: RALTEGRAVIR POTASSIUM
     Dosage: 400MG, BID (DAILY DOSE: 800 MG MILLGRAM(S) EVERY DAYS)
  4. PANTOPRAZOLE [Concomitant]
     Active Substance: PANTOPRAZOLE SODIUM
     Indication: GASTRITIS
     Dosage: 40 MG, UNK
     Route: 048
  5. VENLAFAXINE [Concomitant]
     Active Substance: VENLAFAXINE HYDROCHLORIDE
     Indication: DEPRESSION
     Dosage: 75 MG, UNK
     Route: 048
  6. PIRENZEPINE [Concomitant]
     Active Substance: PIRENZEPINE
     Dosage: 100 MG, UNK
     Route: 048
  7. LAMOTRIGIN [Interacting]
     Active Substance: LAMOTRIGINE
     Indication: CONVULSION
     Dosage: 100MD, BID (DAILY DOSE: 200 MG MILLGRAM(S) EVERY DAYS)
  8. CLOZAPIN [Suspect]
     Active Substance: CLOZAPINE
     Indication: SCHIZOPHRENIA
     Dosage: 450 MG, UNK
     Route: 048

REACTIONS (1)
  - Drug level increased [Unknown]

NARRATIVE: CASE EVENT DATE: 20140814
